FAERS Safety Report 8185509 (Version 5)
Quarter: 2014Q2

REPORT INFORMATION
  Report Type: Spontaneous
  Country: US (occurrence: US)
  Receive Date: 20111018
  Receipt Date: 20140509
  Transmission Date: 20141212
  Serious: Yes (Hospitalization, Other)
  Sender: FDA-Public Use
  Company Number: US-ASTRAZENECA-2011SE36649

PATIENT
  Age: 62 Year
  Sex: Male
  Weight: 76.7 kg

DRUGS (4)
  1. SYMBICORT [Suspect]
     Indication: ASTHMA PROPHYLAXIS
     Dosage: 160/4.5 TWO PUFFS TWICE A DAY.
     Route: 055
     Dates: end: 201311
  2. SYMBICORT [Suspect]
     Indication: ASTHMA PROPHYLAXIS
     Dosage: 160/4.5 EITHER THREE TIMES OR DAILY, UNKNOWN
     Route: 055
  3. PROAIR [Concomitant]
  4. BESYLATE [Concomitant]
     Indication: HYPERTENSION
     Route: 048

REACTIONS (9)
  - Asthma [Unknown]
  - Fall [Unknown]
  - Head injury [Unknown]
  - Rotator cuff syndrome [Unknown]
  - Musculoskeletal pain [Not Recovered/Not Resolved]
  - Glucose tolerance impaired [Unknown]
  - Intentional product misuse [Unknown]
  - Drug dose omission [Not Recovered/Not Resolved]
  - Intentional product misuse [Not Recovered/Not Resolved]
